FAERS Safety Report 14239148 (Version 2)
Quarter: 2018Q1

REPORT INFORMATION
  Report Type: Spontaneous
  Country: US (occurrence: US)
  Receive Date: 20171130
  Receipt Date: 20180122
  Transmission Date: 20180508
  Serious: No
  Sender: FDA-Public Use
  Company Number: US-BRISTOL-MYERS SQUIBB COMPANY-BMS-2017-105029

PATIENT
  Sex: Male

DRUGS (1)
  1. COUMADIN [Suspect]
     Active Substance: WARFARIN SODIUM
     Indication: PRODUCT USED FOR UNKNOWN INDICATION
     Route: 065

REACTIONS (8)
  - Injury [Unknown]
  - Hepatic pain [Unknown]
  - Pain [Unknown]
  - Dizziness [Unknown]
  - Emotional distress [Unknown]
  - Haemoptysis [Unknown]
  - Vomiting [Unknown]
  - Epistaxis [Unknown]
